FAERS Safety Report 9325399 (Version 2)
Quarter: 2013Q2

REPORT INFORMATION
  Report Type: Spontaneous
  Country: FR (occurrence: FR)
  Receive Date: 20130604
  Receipt Date: 20130613
  Transmission Date: 20140414
  Serious: Yes (Hospitalization)
  Sender: FDA-Public Use
  Company Number: FR-PFIZER INC-2013167644

PATIENT
  Age: 82 Year
  Sex: Female

DRUGS (9)
  1. CORDARONE [Suspect]
     Indication: ATRIAL FLUTTER
     Dosage: 200 MG, DAILY (1DF, DAILY)
     Route: 048
     Dates: start: 20121201
  2. DILTIAZEM HCL [Interacting]
     Indication: ATRIAL FLUTTER
     Dosage: 120 MG, DAILY (2 TABLETS DAILY)
     Route: 048
     Dates: start: 20121201, end: 201212
  3. LOVENOX [Suspect]
     Dosage: 0.7 ML TWICE A DAY
     Route: 058
     Dates: start: 20121201, end: 20121208
  4. LOVENOX [Suspect]
     Dosage: 0.7 ML TWICE A DAY
     Route: 058
     Dates: start: 20121213, end: 20121219
  5. PRADAXA [Interacting]
     Dosage: 220 MG, DAILY (2 CAPSULES DAILY)
     Route: 048
     Dates: start: 20121217, end: 20121219
  6. HEMIGOXINE NATIVELLE [Concomitant]
     Dosage: UNK
     Dates: start: 20121201
  7. FORADIL [Concomitant]
     Dosage: UNK
  8. MIFLONIL [Concomitant]
     Dosage: UNK
  9. LEVOTHYROX [Concomitant]

REACTIONS (6)
  - Overdose [Recovering/Resolving]
  - Drug interaction [Recovering/Resolving]
  - Haematoma [Recovering/Resolving]
  - Lip haemorrhage [Recovered/Resolved]
  - Abdominal wall haematoma [None]
  - Haemoglobin decreased [None]
